FAERS Safety Report 8979779 (Version 1)
Quarter: 2012Q4

REPORT INFORMATION
  Report Type: 
  Country: US (occurrence: US)
  Receive Date: 20121221
  Receipt Date: 20121221
  Transmission Date: 20130627
  Serious: Yes (Hospitalization)
  Sender: FDA-Public Use
  Company Number: PHEH2012US021526

PATIENT
  Age: 15 Year
  Sex: Female
  Weight: 52.4 kg

DRUGS (6)
  1. GLEEVEC [Suspect]
     Indication: WHITE BLOOD CELL DISORDER
     Dosage: 500 mg, daily
     Route: 048
     Dates: start: 20090722, end: 20121101
  2. METHOTREXATE [Concomitant]
  3. MERCAPTOPURINE [Concomitant]
  4. BACTRIM [Concomitant]
  5. CIPRO [Concomitant]
  6. ZOFRAN [Concomitant]

REACTIONS (2)
  - Disease recurrence [Unknown]
  - Headache [Unknown]
